FAERS Safety Report 5252761-X (Version None)
Quarter: 2007Q1

REPORT INFORMATION
  Report Type: 
  Country: None (occurrence: None)
  Receive Date: 20070301
  Receipt Date: 20061128
  Transmission Date: 20070707
  Serious: No
  Sender: FDA-Public Use
  Company Number: US-GLAXOSMITHKLINE-A0628991A

PATIENT
  Age: 51 Year
  Sex: Male

DRUGS (4)
  1. LAMICTAL [Suspect]
     Indication: BIPOLAR DISORDER
     Dosage: 100MG PER DAY
     Route: 048
     Dates: start: 20041101, end: 20061101
  2. LOTION [Suspect]
     Indication: DRY SKIN
     Dosage: 1APP UNKNOWN
     Route: 062
  3. LEXAPRO [Concomitant]
  4. ZYPREXA [Concomitant]

REACTIONS (2)
  - RASH [None]
  - RASH ERYTHEMATOUS [None]
